FAERS Safety Report 6705357-4 (Version None)
Quarter: 2010Q2

REPORT INFORMATION
  Report Type: 
  Country: None (occurrence: None)
  Receive Date: 20100502
  Receipt Date: 20100421
  Transmission Date: 20101027
  Serious: Yes (Hospitalization)
  Sender: FDA-Public Use
  Company Number: FR-BRISTOL-MYERS SQUIBB COMPANY-15085194

PATIENT
  Age: 72 Year
  Sex: Female

DRUGS (12)
  1. GLUCOPHAGE [Suspect]
     Dosage: FORMULATION: TABLET
     Route: 048
     Dates: start: 20100204, end: 20100223
  2. ROCEPHIN [Suspect]
     Dosage: DOSAGE FORM - 1G, POWDER FOR SOLUTION FOR INJECTION
     Route: 030
     Dates: start: 20100119, end: 20100222
  3. SINTROM [Suspect]
     Dosage: FORMULATION: TABLET
     Route: 048
     Dates: start: 20100204, end: 20100223
  4. EFFEXOR [Suspect]
     Dosage: FORMULATION: TABLET
     Route: 048
     Dates: start: 20100210, end: 20100223
  5. COZAAR [Concomitant]
  6. DIGOXIN [Concomitant]
  7. LOXEN [Concomitant]
  8. NEXIUM [Concomitant]
  9. FUROSEMIDE [Concomitant]
  10. SYMBICORT [Concomitant]
  11. BRICANYL [Concomitant]
  12. HEPARIN [Concomitant]

REACTIONS (3)
  - DRUG RASH WITH EOSINOPHILIA AND SYSTEMIC SYMPTOMS [None]
  - EOSINOPHILIA [None]
  - RASH [None]
